FAERS Safety Report 21176320 (Version 1)
Quarter: 2022Q3

REPORT INFORMATION
  Report Type: Spontaneous
  Country: US (occurrence: US)
  Receive Date: 20220805
  Receipt Date: 20220805
  Transmission Date: 20221027
  Serious: No
  Sender: FDA-Public Use
  Company Number: US-NEURELIS, INC.-2022NEU000041

PATIENT

DRUGS (1)
  1. VALTOCO [Suspect]
     Active Substance: DIAZEPAM
     Indication: Petit mal epilepsy
     Dosage: 20 MILLIGRAM
     Route: 045
     Dates: start: 20220513

REACTIONS (2)
  - Nasal discomfort [Unknown]
  - Product after taste [Unknown]

NARRATIVE: CASE EVENT DATE: 20220513
